FAERS Safety Report 17765658 (Version 1)
Quarter: 2020Q2

REPORT INFORMATION
  Report Type: Spontaneous
  Country: US (occurrence: US)
  Receive Date: 20200509
  Receipt Date: 20200509
  Transmission Date: 20200714
  Serious: No
  Sender: FDA-Public Use
  Company Number: None

PATIENT
  Age: 33 Year
  Sex: Male
  Weight: 81 kg

DRUGS (1)
  1. AVEENO ACTIVE NATURALS SKIN RELIEF 24HR MOISTURIZING FRAGRANCE FREE [Suspect]
     Active Substance: DIMETHICONE
     Indication: PRODUCT USED FOR UNKNOWN INDICATION
     Dosage: ?          QUANTITY:1 BOTTLE;?
     Route: 061
     Dates: start: 20200503, end: 20200504

REACTIONS (2)
  - Skin exfoliation [None]
  - Expired product administered [None]

NARRATIVE: CASE EVENT DATE: 20200504
